FAERS Safety Report 12492482 (Version 1)
Quarter: 2016Q2

REPORT INFORMATION
  Report Type: Spontaneous
  Country: GB (occurrence: GB)
  Receive Date: 20160623
  Receipt Date: 20160623
  Transmission Date: 20160815
  Serious: Yes (Other)
  Sender: FDA-Public Use
  Company Number: GB-TEVA-669252ACC

PATIENT
  Age: 84 Year
  Sex: Female

DRUGS (1)
  1. ALENDRONIC ACID [Suspect]
     Active Substance: ALENDRONIC ACID
     Indication: OSTEOPOROSIS
     Dates: start: 20160501

REACTIONS (2)
  - Blindness [Unknown]
  - Optic neuritis [Unknown]

NARRATIVE: CASE EVENT DATE: 20160511
